FAERS Safety Report 7539053-0 (Version None)
Quarter: 2011Q2

REPORT INFORMATION
  Report Type: 
  Country: None (occurrence: None)
  Receive Date: 20110610
  Receipt Date: 20010104
  Transmission Date: 20111010
  Serious: Yes (Hospitalization, Other)
  Sender: FDA-Public Use
  Company Number: PHHO2001BR10556

PATIENT
  Age: 53 Year
  Sex: Female

DRUGS (1)
  1. COMBIPATCH [Suspect]
     Dosage: 1 PATCH TWICE WEEKLY
     Route: 062

REACTIONS (2)
  - MENORRHAGIA [None]
  - NEOPLASM [None]
